FAERS Safety Report 19163836 (Version 1)
Quarter: 2021Q2

REPORT INFORMATION
  Report Type: Spontaneous
  Country: ID (occurrence: ID)
  Receive Date: 20210421
  Receipt Date: 20210421
  Transmission Date: 20210717
  Serious: Yes (Hospitalization, Other)
  Sender: FDA-Public Use
  Company Number: ID-ASTRAZENECA-2021A324990

PATIENT

DRUGS (1)
  1. TAGRISSO [Suspect]
     Active Substance: OSIMERTINIB
     Indication: NON-SMALL CELL LUNG CANCER
     Route: 048

REACTIONS (4)
  - Pulmonary oedema [Unknown]
  - Stomatitis [Unknown]
  - Eating disorder symptom [Unknown]
  - Product use issue [Unknown]
